FAERS Safety Report 6179636-6 (Version None)
Quarter: 2009Q2

REPORT INFORMATION
  Report Type: 
  Country: None (occurrence: None)
  Receive Date: 20090505
  Receipt Date: 20090430
  Transmission Date: 20091009
  Serious: Yes (Other)
  Sender: FDA-Public Use
  Company Number: US-MERCK-0905USA00031

PATIENT
  Age: 59 Year
  Sex: Male

DRUGS (7)
  1. IVEMEND [Suspect]
     Indication: PROPHYLAXIS OF NAUSEA AND VOMITING
     Route: 041
     Dates: start: 20090429, end: 20090429
  2. ANZEMET [Suspect]
     Route: 065
     Dates: start: 20090429
  3. DECADRON [Suspect]
     Route: 048
     Dates: start: 20090429
  4. ATACAND [Concomitant]
     Route: 065
  5. AMBIEN [Concomitant]
     Route: 065
  6. PERCOCET [Concomitant]
     Route: 065
  7. TREANDA [Concomitant]
     Route: 065
     Dates: start: 20090409

REACTIONS (3)
  - BLOOD PRESSURE INCREASED [None]
  - DYSPNOEA [None]
  - ERYTHEMA [None]
